FAERS Safety Report 14149031 (Version 1)
Quarter: 2017Q4

REPORT INFORMATION
  Report Type: Spontaneous
  Country: US (occurrence: US)
  Receive Date: 20171101
  Receipt Date: 20171101
  Transmission Date: 20180321
  Serious: No
  Sender: FDA-Public Use
  Company Number: US-BRISTOL-MYERS SQUIBB COMPANY-BMS-2017-098460

PATIENT
  Age: 54 Year
  Sex: Female

DRUGS (1)
  1. ORENCIA [Suspect]
     Active Substance: ABATACEPT
     Indication: MULTIPLE SCLEROSIS
     Dosage: 125 MG, QWK
     Route: 058
     Dates: start: 20170817

REACTIONS (3)
  - Drug ineffective [Unknown]
  - Migraine [Unknown]
  - Product use in unapproved indication [Unknown]
